FAERS Safety Report 20103267 (Version 1)
Quarter: 2021Q4

REPORT INFORMATION
  Report Type: Spontaneous
  Country: CN (occurrence: CN)
  Receive Date: 20211123
  Receipt Date: 20211123
  Transmission Date: 20220303
  Serious: Yes (Other)
  Sender: FDA-Public Use
  Company Number: CN-ABBVIE-21K-035-4171534-00

PATIENT
  Age: 5 Year
  Sex: Male
  Weight: 21 kg

DRUGS (5)
  1. VALPROATE SODIUM [Suspect]
     Active Substance: VALPROATE SODIUM
     Indication: Seizure prophylaxis
     Route: 048
     Dates: start: 20200115, end: 20200117
  2. CYTARABINE [Suspect]
     Active Substance: CYTARABINE
     Indication: Neoplasm
     Route: 041
     Dates: start: 20200114, end: 20200119
  3. SODIUM CHLORIDE [Concomitant]
     Active Substance: SODIUM CHLORIDE
     Indication: Product used for unknown indication
     Route: 050
     Dates: start: 20200114, end: 20200119
  4. ONDANSETRON [Concomitant]
     Active Substance: ONDANSETRON
     Indication: Product used for unknown indication
  5. OMEPRAZOLE [Concomitant]
     Active Substance: OMEPRAZOLE
     Indication: Product used for unknown indication

REACTIONS (2)
  - Gastrointestinal necrosis [Recovering/Resolving]
  - Hyponatraemia [Recovering/Resolving]

NARRATIVE: CASE EVENT DATE: 20200117
